FAERS Safety Report 25925331 (Version 2)
Quarter: 2025Q4

REPORT INFORMATION
  Report Type: Report from Study
  Country: US (occurrence: US)
  Receive Date: 20251015
  Receipt Date: 20251023
  Transmission Date: 20260118
  Serious: Yes (Death, Life-Threatening, Hospitalization, Other)
  Sender: GILEAD
  Company Number: US-GILEAD-2025-0731153

PATIENT
  Age: 30 Year
  Sex: Male
  Weight: 63.2 kg

DRUGS (1)
  1. BREXUCABTAGENE AUTOLEUCEL [Suspect]
     Active Substance: BREXUCABTAGENE AUTOLEUCEL
     Indication: Acute lymphocytic leukaemia
     Dosage: 0.5 TO 1.2 X 10E6/ML
     Route: 042
     Dates: start: 20250929

REACTIONS (2)
  - Death [Fatal]
  - Sinusitis fungal [Fatal]

NARRATIVE: CASE EVENT DATE: 20251001
